FAERS Safety Report 6316951-7 (Version None)
Quarter: 2009Q3

REPORT INFORMATION
  Report Type: 
  Country: None (occurrence: None)
  Receive Date: 20090820
  Receipt Date: 20090811
  Transmission Date: 20100115
  Serious: Yes (Death, Other)
  Sender: FDA-Public Use
  Company Number: HQWYE247409JAN06

PATIENT
  Sex: Female

DRUGS (1)
  1. PREMARIN [Suspect]

REACTIONS (2)
  - BREAST CANCER METASTATIC [None]
  - CARDIAC DISORDER [None]
